FAERS Safety Report 6114354-1 (Version None)
Quarter: 2009Q1

REPORT INFORMATION
  Report Type: 
  Country: None (occurrence: None)
  Receive Date: 20090312
  Receipt Date: 20081008
  Transmission Date: 20090719
  Serious: Yes (Congenital Anomaly)
  Sender: FDA-Public Use
  Company Number: US-ABBOTT-99P-163-0060281-00

PATIENT
  Sex: Male
  Weight: 3.836 kg

DRUGS (2)
  1. DEPAKOTE [Suspect]
     Indication: DRUG EXPOSURE DURING PREGNANCY
  2. NONE [Concomitant]

REACTIONS (4)
  - ATRIAL SEPTAL DEFECT [None]
  - CARDIAC VALVE DISEASE [None]
  - DRUG EXPOSURE DURING PREGNANCY [None]
  - MICROCEPHALY [None]
